FAERS Safety Report 24261516 (Version 1)
Quarter: 2024Q3

REPORT INFORMATION
  Report Type: Spontaneous
  Country: US (occurrence: US)
  Receive Date: 20240829
  Receipt Date: 20240829
  Transmission Date: 20241016
  Serious: No
  Sender: ROCHE
  Company Number: US-ROCHE-10000064768

PATIENT
  Age: 18 Year
  Sex: Female

DRUGS (2)
  1. XOLAIR PFS [Suspect]
     Active Substance: OMALIZUMAB
     Indication: Respiratory disorder
     Dosage: FORM STRENGTH 150MG/ML,?THE PATIENT RECEIVED 300MG PART OF 375MG REGIMENT
     Route: 058
  2. XOLAIR PFS [Suspect]
     Active Substance: OMALIZUMAB

REACTIONS (3)
  - Off label use [Unknown]
  - Product dispensing error [Unknown]
  - No adverse event [Unknown]
